FAERS Safety Report 7555429-X (Version None)
Quarter: 2011Q2

REPORT INFORMATION
  Report Type: 
  Country: None (occurrence: None)
  Receive Date: 20110617
  Receipt Date: 20110608
  Transmission Date: 20111010
  Serious: Yes (Other)
  Sender: FDA-Public Use
  Company Number: US-ASTRAZENECA-2011SE07202

PATIENT
  Age: 67 Year
  Sex: Female

DRUGS (4)
  1. CHEMO [Concomitant]
  2. NEXIUM [Suspect]
     Route: 048
  3. PRILOSEC [Suspect]
     Route: 048
  4. CRESTOR [Suspect]
     Route: 048

REACTIONS (5)
  - LEUKAEMIA [None]
  - DRUG INEFFECTIVE [None]
  - BONE MARROW TRANSPLANT [None]
  - MALAISE [None]
  - DRUG DOSE OMISSION [None]
